FAERS Safety Report 4958291-4 (Version None)
Quarter: 2006Q1

REPORT INFORMATION
  Report Type: 
  Country: None (occurrence: None)
  Receive Date: 20060324
  Receipt Date: 20060310
  Transmission Date: 20060701
  Serious: Yes (Death, Hospitalization)
  Sender: FDA-Public Use
  Company Number: AZAPHGL2003CL001

PATIENT
  Age: 76 Year
  Sex: Male
  Weight: 60 kg

DRUGS (1)
  1. AZACITIDINE (AZACITIDINE) (INJECTION) [Suspect]
     Indication: MYELODYSPLASTIC SYNDROME
     Dosage: 75 MG/M2 (120 MG, DAILY X 7 DAYS) SUBCUTANEOUS
     Route: 058
     Dates: start: 20051229, end: 20060104

REACTIONS (17)
  - ATELECTASIS [None]
  - DEPRESSED LEVEL OF CONSCIOUSNESS [None]
  - EPISTAXIS [None]
  - HAEMATEMESIS [None]
  - HAEMORRHAGIC DIATHESIS [None]
  - HEPATOMEGALY [None]
  - LUNG INFECTION [None]
  - LUNG INFILTRATION [None]
  - METABOLIC ACIDOSIS [None]
  - NEUTROPENIC SEPSIS [None]
  - PANCYTOPENIA [None]
  - PULMONARY TUBERCULOSIS [None]
  - SEPTIC SHOCK [None]
  - SPLENIC ABSCESS [None]
  - SPLENIC INFARCTION [None]
  - SPLENOMEGALY [None]
  - STOMATITIS [None]
